FAERS Safety Report 5251334-2 (Version None)
Quarter: 2007Q1

REPORT INFORMATION
  Report Type: 
  Country: None (occurrence: None)
  Receive Date: 20070228
  Receipt Date: 20070223
  Transmission Date: 20070707
  Serious: Yes (Hospitalization)
  Sender: FDA-Public Use
  Company Number: HQWYE056127FEB07

PATIENT
  Sex: Male
  Weight: 70 kg

DRUGS (1)
  1. TYGACIL [Suspect]
     Indication: OSTEOMYELITIS
     Dosage: 100 MG BOLUS THEN 50 MG
     Route: 042
     Dates: start: 20070206, end: 20070207

REACTIONS (4)
  - GENERALISED OEDEMA [None]
  - PRURITUS [None]
  - PYREXIA [None]
  - RASH GENERALISED [None]
